FAERS Safety Report 6871930-6 (Version None)
Quarter: 2010Q3

REPORT INFORMATION
  Report Type: 
  Country: None (occurrence: None)
  Receive Date: 20100723
  Receipt Date: 20100713
  Transmission Date: 20110219
  Serious: Yes (Other)
  Sender: FDA-Public Use
  Company Number: US-SANOFI-AVENTIS-2010SA041397

PATIENT
  Age: 66 Year
  Sex: Female

DRUGS (12)
  1. MULTAQ [Suspect]
     Indication: ATRIAL FIBRILLATION
     Route: 048
     Dates: start: 20100709, end: 20100713
  2. ASPIRIN [Concomitant]
     Route: 048
  3. NITROGLYCERIN [Concomitant]
     Dates: start: 20050101
  4. CEPHALEXIN [Concomitant]
     Dates: start: 20060101
  5. CRESTOR [Concomitant]
  6. METOPROLOL SUCCINATE [Concomitant]
     Route: 048
  7. PLAVIX [Concomitant]
     Route: 048
     Dates: start: 20070101
  8. NIASPAN [Concomitant]
     Dates: start: 20090101
  9. TRAVATAN [Concomitant]
     Dates: start: 20090101
  10. LEVOTHYROXINE SODIUM [Concomitant]
     Dates: start: 20090101
  11. NASONEX [Concomitant]
     Dates: start: 20090101
  12. COUMADIN [Concomitant]
     Dates: start: 20090101

REACTIONS (1)
  - ACUTE PULMONARY OEDEMA [None]
